FAERS Safety Report 23020526 (Version 1)
Quarter: 2023Q4

REPORT INFORMATION
  Report Type: Spontaneous
  Country: US (occurrence: None)
  Receive Date: 20231002
  Receipt Date: 20231002
  Transmission Date: 20240110
  Serious: Yes (Hospitalization)
  Sender: FDA-Public Use
  Company Number: None

PATIENT
  Age: 36 Year
  Sex: Male

DRUGS (3)
  1. BIKTARVY [Suspect]
     Active Substance: BICTEGRAVIR SODIUM\EMTRICITABINE\TENOFOVIR ALAFENAMIDE FUMARATE
     Dosage: FREQUENCY : DAILY;?
     Route: 048
  2. ATOVAQUONE [Concomitant]
     Active Substance: ATOVAQUONE
  3. FLUCONAZOLE [Concomitant]
     Active Substance: FLUCONAZOLE

REACTIONS (4)
  - Aggression [None]
  - Job dissatisfaction [None]
  - Abdominal discomfort [None]
  - Job dissatisfaction [None]

NARRATIVE: CASE EVENT DATE: 20230926
